FAERS Safety Report 8224500-1 (Version None)
Quarter: 2012Q1

REPORT INFORMATION
  Report Type: 
  Country: None (occurrence: None)
  Receive Date: 20120320
  Receipt Date: 20120320
  Transmission Date: 20120608
  Serious: Yes (Hospitalization)
  Sender: FDA-Public Use
  Company Number: None

PATIENT
  Sex: Female
  Weight: 108 kg

DRUGS (3)
  1. NEULASTA [Suspect]
     Dosage: 6 MCG
  2. CARBOPLATIN [Suspect]
     Dosage: 750 MG
  3. TAXOL [Suspect]
     Dosage: 350 MG

REACTIONS (11)
  - DIZZINESS [None]
  - DIARRHOEA [None]
  - FAECAL INCONTINENCE [None]
  - URINARY INCONTINENCE [None]
  - PALPITATIONS [None]
  - ASTHENIA [None]
  - DYSPNOEA [None]
  - FATIGUE [None]
  - NAUSEA [None]
  - HYPOPHAGIA [None]
  - BODY TEMPERATURE INCREASED [None]
